FAERS Safety Report 6148477-8 (Version None)
Quarter: 2009Q2

REPORT INFORMATION
  Report Type: 
  Country: None (occurrence: None)
  Receive Date: 20090408
  Receipt Date: 20090327
  Transmission Date: 20091009
  Serious: Yes (Other)
  Sender: FDA-Public Use
  Company Number: PHHY2009GB12006

PATIENT
  Sex: Male

DRUGS (1)
  1. CLOZARIL [Suspect]
     Indication: SCHIZOPHRENIA
     Dosage: UNK
     Dates: start: 20090302

REACTIONS (9)
  - BLOOD URINE PRESENT [None]
  - BODY TEMPERATURE INCREASED [None]
  - CONFUSIONAL STATE [None]
  - COUGH [None]
  - LOWER RESPIRATORY TRACT INFECTION [None]
  - POLLAKIURIA [None]
  - SALIVARY HYPERSECRETION [None]
  - SOMNOLENCE [None]
  - TACHYCARDIA [None]
